FAERS Safety Report 9005865 (Version 1)
Quarter: 2013Q1

REPORT INFORMATION
  Report Type: Spontaneous
  Country: NL (occurrence: NL)
  Receive Date: 20130109
  Receipt Date: 20130109
  Transmission Date: 20140127
  Serious: Yes (Hospitalization)
  Sender: FDA-Public Use
  Company Number: PHHY2013NL001289

PATIENT
  Age: 86 Year
  Sex: Female
  Weight: 60 kg

DRUGS (15)
  1. CLOZAPINE [Suspect]
     Indication: HALLUCINATION
     Dosage: 6.25 MG, QD
     Dates: start: 20121008, end: 20121213
  2. GALANTAMINE [Concomitant]
     Dosage: 16 MG, (2 DD 1)
  3. GALANTAMINE [Concomitant]
     Dosage: 8 MG, (1 DD 1)
  4. RIVASTIGMINE [Concomitant]
     Dosage: 3 MG, (2 DD 1)
  5. SINEMET [Concomitant]
     Dosage: 62.5 MG, (50MG, 12.5 MG) (1 DD 1)
  6. SINEMET [Concomitant]
     Dosage: 125 MG, (3 DD 1 DF)
  7. TEMAZEPAM [Concomitant]
     Dosage: 10 MG, (1 DD 1)
  8. PANTOPRAZOLE [Concomitant]
     Dosage: 20 MG, (1DD 1)
  9. PARACETAMOL [Concomitant]
     Dosage: 500 MG, UNK
  10. LANOXIN PG [Concomitant]
     Dosage: 0.062 MG, QD
  11. ACENOCOUMAROL [Concomitant]
     Dosage: 1 MG, UNK
  12. ACTONEL [Concomitant]
     Dosage: 35 MG, ONCE A WEEK
  13. CALCICHEW D3 [Concomitant]
     Dosage: 1 DF, (500 MG/80 IE) (1 DD 1)
  14. FUROSEMIDE [Concomitant]
     Dosage: 40 MG, (1 DD 1)
  15. PERINDOPRIL [Concomitant]
     Dosage: 2 MG, (1 DD 1)

REACTIONS (2)
  - Bronchospasm [Recovered/Resolved with Sequelae]
  - Dyspnoea [Unknown]
